FAERS Safety Report 15124052 (Version 1)
Quarter: 2018Q3

REPORT INFORMATION
  Report Type: Spontaneous
  Country: US (occurrence: US)
  Receive Date: 20180710
  Receipt Date: 20180710
  Transmission Date: 20181010
  Serious: Yes (Other)
  Sender: FDA-Public Use
  Company Number: US-009507513-1807USA002134

PATIENT
  Age: 81 Year
  Sex: Female

DRUGS (1)
  1. KEYTRUDA [Suspect]
     Active Substance: PEMBROLIZUMAB
     Indication: NON-SMALL CELL LUNG CANCER
     Dosage: 200 MG / EVERY 3 WEEKS
     Route: 042
     Dates: start: 201711

REACTIONS (2)
  - Dehydration [Not Recovered/Not Resolved]
  - Autoimmune colitis [Not Recovered/Not Resolved]

NARRATIVE: CASE EVENT DATE: 2018
